FAERS Safety Report 21757088 (Version 1)
Quarter: 2022Q4

REPORT INFORMATION
  Report Type: Report from Study
  Country: US (occurrence: US)
  Receive Date: 20221220
  Receipt Date: 20221220
  Transmission Date: 20230113
  Serious: Yes (Hospitalization, Other)
  Sender: FDA-Public Use
  Company Number: US-SEATTLE GENETICS-2022SGN11911

PATIENT
  Age: 57 Year
  Sex: Female
  Weight: 101.2 kg

DRUGS (3)
  1. TUCATINIB [Suspect]
     Active Substance: TUCATINIB
     Indication: Invasive breast carcinoma
     Dosage: UNK
     Dates: start: 20221109, end: 20221202
  2. TUCATINIB [Suspect]
     Active Substance: TUCATINIB
     Indication: Invasive breast carcinoma
     Dosage: UNK
     Dates: start: 20221109, end: 20221202
  3. ADO-TRASTUZUMAB EMTANSINE [Suspect]
     Active Substance: ADO-TRASTUZUMAB EMTANSINE
     Indication: Invasive breast carcinoma
     Dosage: UNK

REACTIONS (2)
  - Platelet count decreased [Recovered/Resolved]
  - Hypokalaemia [Unknown]

NARRATIVE: CASE EVENT DATE: 20221204
